FAERS Safety Report 8770523 (Version 1)
Quarter: 2012Q4

REPORT INFORMATION
  Report Type: 
  Country: AU (occurrence: AU)
  Receive Date: 20120906
  Receipt Date: 20120906
  Transmission Date: 20130627
  Serious: Yes (Other)
  Sender: FDA-Public Use
  Company Number: PHHY2012AU076425

PATIENT
  Age: 30 Year
  Sex: Female

DRUGS (4)
  1. CLOZAPINE [Suspect]
  2. EFFEXOR [Suspect]
  3. FOLIC ACID [Concomitant]
  4. IRON [Concomitant]

REACTIONS (2)
  - Gestational diabetes [Unknown]
  - Postpartum haemorrhage [Unknown]
